FAERS Safety Report 20780481 (Version 2)
Quarter: 2022Q2

REPORT INFORMATION
  Report Type: Spontaneous
  Country: CA (occurrence: CA)
  Receive Date: 20220504
  Receipt Date: 20220524
  Transmission Date: 20220721
  Serious: Yes (Life-Threatening, Hospitalization)
  Sender: FDA-Public Use
  Company Number: CA-BEH-2022144944

PATIENT
  Age: 14 Month
  Sex: Female
  Weight: 9 kg

DRUGS (4)
  1. ALBUREX [Suspect]
     Active Substance: ALBUMIN HUMAN
     Indication: Hypoalbuminaemia
     Dosage: 5.5 MILLILITER, TOT
     Route: 042
     Dates: start: 20220315, end: 20220315
  2. ALBUREX [Suspect]
     Active Substance: ALBUMIN HUMAN
     Indication: Generalised oedema
  3. ALBUREX [Suspect]
     Active Substance: ALBUMIN HUMAN
     Indication: Hospitalisation
  4. ALBUREX [Suspect]
     Active Substance: ALBUMIN HUMAN
     Indication: Fluid replacement

REACTIONS (2)
  - Transfusion-related circulatory overload [Recovered/Resolved]
  - Acute respiratory failure [Recovered/Resolved]

NARRATIVE: CASE EVENT DATE: 20220315
